FAERS Safety Report 11746529 (Version 3)
Quarter: 2020Q3

REPORT INFORMATION
  Report Type: Report from Study
  Country: PL (occurrence: PL)
  Receive Date: 20151117
  Receipt Date: 20160208
  Transmission Date: 20201104
  Serious: Yes (Hospitalization)
  Sender: FDA-Public Use
  Company Number: PL-JNJFOC-20150903072

PATIENT
  Age: 57 Year
  Sex: Female
  Weight: 75 kg

DRUGS (24)
  1. DEXAMETHASONE. [Suspect]
     Active Substance: DEXAMETHASONE
     Indication: PLASMA CELL MYELOMA
     Dosage: ON CYCLE 1 DAY 1; ALSO AS PREMEDICATION TO DARATUMUMAB
     Route: 042
     Dates: start: 20150811, end: 20150825
  2. SIOFOR [Concomitant]
     Active Substance: METFORMIN HYDROCHLORIDE
     Indication: DIABETES MELLITUS
     Route: 065
  3. VALSARTAN. [Concomitant]
     Active Substance: VALSARTAN
     Indication: HYPERTENSION
     Route: 065
  4. DARATUMUMAB [Suspect]
     Active Substance: DARATUMUMAB
     Indication: PLASMA CELL MYELOMA
     Dosage: C1 D29 AND C1 D36 SAME AS PRIOR INFUSION, C2 D1, C2 D22
     Route: 042
     Dates: start: 20150908
  5. MELPHALAN. [Suspect]
     Active Substance: MELPHALAN
     Indication: PLASMA CELL MYELOMA
     Dosage: PRESCRIBED 9 MG; CYCLE 1 PERIOD 1
     Route: 048
     Dates: start: 20150811
  6. DEXAMETHASONE. [Suspect]
     Active Substance: DEXAMETHASONE
     Indication: PLASMA CELL MYELOMA
     Route: 042
     Dates: start: 20150908
  7. PREDNISONE. [Suspect]
     Active Substance: PREDNISONE
     Indication: PLASMA CELL MYELOMA
     Dosage: CYCLE 1 PERIOD 1; PRESCRIBED DOSE: 60
     Route: 048
     Dates: start: 20150812, end: 20150814
  8. PREDNISONE. [Suspect]
     Active Substance: PREDNISONE
     Indication: PLASMA CELL MYELOMA
     Route: 048
     Dates: start: 20150811
  9. DEXAMETHASONE. [Concomitant]
     Active Substance: DEXAMETHASONE
     Indication: PREMEDICATION
     Dosage: AS NEED AS DARATUMUMAB PREMEDICATION
     Route: 042
     Dates: start: 20150811
  10. KETONAL [KETOPROFEN] [Concomitant]
     Active Substance: KETOPROFEN
     Indication: BONE LESION
  11. ATOSSA [Concomitant]
     Indication: PROPHYLAXIS
  12. DARATUMUMAB [Suspect]
     Active Substance: DARATUMUMAB
     Indication: PLASMA CELL MYELOMA
     Dosage: CYCLE 1 DAY 1, FOLLOWED BY SAME DOSE AS PRIOR INFUSION ON BOTH CYCLE 1 DAY 8 AND CYCLE 1 DAY 15
     Route: 042
     Dates: start: 20150811, end: 20150825
  13. VELCADE [Suspect]
     Active Substance: BORTEZOMIB
     Indication: PLASMA CELL MYELOMA
     Dosage: C1 D29 08?SEP?2015; C1 D32 11?SEP?2015
     Route: 058
     Dates: start: 20150908
  14. DEXAMETHASONE. [Concomitant]
     Active Substance: DEXAMETHASONE
     Indication: PLASMA CELL MYELOMA
     Dosage: AS NEED AS DARATUMUMAB PREMEDICATION
     Route: 042
     Dates: start: 20150811
  15. MILURIT [Concomitant]
     Active Substance: ALLOPURINOL
     Indication: PROPHYLAXIS
  16. POLPRAZOL [Concomitant]
     Active Substance: OMEPRAZOLE
     Indication: CHRONIC GASTRITIS
     Route: 065
  17. OMEPRAZOLE. [Concomitant]
     Active Substance: OMEPRAZOLE
     Indication: PROPHYLAXIS
  18. ACARD [Concomitant]
     Active Substance: ASPIRIN
     Indication: PROPHYLAXIS
  19. RANIGAST [Concomitant]
     Indication: PROPHYLAXIS
  20. BACTRIM [Concomitant]
     Active Substance: SULFAMETHOXAZOLE\TRIMETHOPRIM
     Indication: PROPHYLAXIS
  21. VELCADE [Suspect]
     Active Substance: BORTEZOMIB
     Indication: PLASMA CELL MYELOMA
     Dosage: DAY 1,4,8,11; CYCLE 1 D8 ON 18?AUG?2015; CYCLE 1 D11 ON 21?AUG?2015
     Route: 058
     Dates: start: 20150811, end: 20150821
  22. MORPHINE [Concomitant]
     Active Substance: MORPHINE
     Dosage: MST
     Route: 065
  23. ACYCLOVIR. [Concomitant]
     Active Substance: ACYCLOVIR
     Indication: PROPHYLAXIS
  24. ZOFRAN [Concomitant]
     Active Substance: ONDANSETRON HYDROCHLORIDE
     Indication: PROPHYLAXIS

REACTIONS (1)
  - Pneumococcal sepsis [Recovered/Resolved]

NARRATIVE: CASE EVENT DATE: 20150828
